FAERS Safety Report 4674092-9 (Version None)
Quarter: 2005Q2

REPORT INFORMATION
  Report Type: 
  Country: None (occurrence: None)
  Receive Date: 20050524
  Receipt Date: 20050524
  Transmission Date: 20051028
  Serious: Yes (Hospitalization)
  Sender: FDA-Public Use
  Company Number: None

PATIENT
  Age: 40 Year
  Sex: Female
  Weight: 135 kg

DRUGS (5)
  1. VANCOMYCIN [Suspect]
     Indication: BACTERIAL INFECTION
     Dosage: 1.25 G  IVPB  Q12H
     Route: 042
     Dates: start: 20050226, end: 20050228
  2. VANCOMYCIN [Suspect]
     Indication: HAEMATOMA INFECTION
     Dosage: 1.25 G  IVPB  Q12H
     Route: 042
     Dates: start: 20050226, end: 20050228
  3. IV CONTRAST FOR CT OF ABDOMEN [Suspect]
     Indication: SCAN WITH CONTRAST
     Dates: start: 20050225
  4. CASPOFUNGIN [Concomitant]
  5. ZOSYN [Concomitant]

REACTIONS (1)
  - BLOOD CREATININE INCREASED [None]
